FAERS Safety Report 7712458-0 (Version None)
Quarter: 2011Q3

REPORT INFORMATION
  Report Type: 
  Country: None (occurrence: None)
  Receive Date: 20110826
  Receipt Date: 20110826
  Transmission Date: 20111222
  Serious: Yes (Other)
  Sender: FDA-Public Use
  Company Number: None

PATIENT
  Sex: Male
  Weight: 119.74 kg

DRUGS (1)
  1. DICYCLOMINE [Suspect]

REACTIONS (2)
  - NAUSEA [None]
  - NO THERAPEUTIC RESPONSE [None]
